FAERS Safety Report 11845405 (Version 2)
Quarter: 2015Q4

REPORT INFORMATION
  Report Type: Spontaneous
  Country: US (occurrence: US)
  Receive Date: 20151217
  Receipt Date: 20151228
  Transmission Date: 20160305
  Serious: No
  Sender: FDA-Public Use
  Company Number: US-PFIZER INC-2015445095

PATIENT
  Age: 33 Year
  Sex: Female
  Weight: 60.78 kg

DRUGS (1)
  1. SERTRALINE HCL [Suspect]
     Active Substance: SERTRALINE HYDROCHLORIDE
     Indication: ANXIETY
     Dosage: 50 MG, TABLETS, ORALLY, ONE A DAY
     Route: 048
     Dates: start: 201511, end: 201511

REACTIONS (3)
  - Feeling abnormal [Unknown]
  - Cerebral disorder [Unknown]
  - Head titubation [Not Recovered/Not Resolved]

NARRATIVE: CASE EVENT DATE: 2015
